FAERS Safety Report 21388470 (Version 1)
Quarter: 2022Q3

REPORT INFORMATION
  Report Type: Spontaneous
  Country: CN (occurrence: CN)
  Receive Date: 20220928
  Receipt Date: 20220928
  Transmission Date: 20221026
  Serious: Yes (Other)
  Sender: FDA-Public Use
  Company Number: CN-009507513-2209CHN009083

PATIENT
  Age: 84 Year
  Sex: Female
  Weight: 37.5 kg

DRUGS (2)
  1. CILASTATIN SODIUM\IMIPENEM [Suspect]
     Active Substance: CILASTATIN SODIUM\IMIPENEM
     Indication: Biliary tract infection
     Dosage: 1 GRAM, TWICE A DAY
     Route: 041
     Dates: start: 20220916, end: 20220920
  2. SODIUM CHLORIDE [Concomitant]
     Active Substance: SODIUM CHLORIDE
     Indication: Medication dilution
     Dosage: 100 ML, TWICE DAILY(ALSO REPORTED AS QD, CONFLICTING INFORMATION IN ORIGINAL AGENCY REPORT)
     Route: 041
     Dates: start: 20220916, end: 20220920

REACTIONS (2)
  - Epilepsy [Recovering/Resolving]
  - Product use issue [Unknown]

NARRATIVE: CASE EVENT DATE: 20220916
